FAERS Safety Report 10367602 (Version 1)
Quarter: 2014Q3

REPORT INFORMATION
  Report Type: Report from Study
  Country: FR (occurrence: FR)
  Receive Date: 20140807
  Receipt Date: 20140807
  Transmission Date: 20150326
  Serious: Yes (Other)
  Sender: FDA-Public Use
  Company Number: FR-ASTELLAS-2014EU010562

PATIENT

DRUGS (1)
  1. TACROLIMUS. [Suspect]
     Active Substance: TACROLIMUS
     Indication: COLITIS ULCERATIVE
     Dosage: UNK UNK, UNKNOWN FREQ.
     Route: 048

REACTIONS (6)
  - Thrombophlebitis superficial [Unknown]
  - Tremor [Unknown]
  - Renal disorder [Unknown]
  - Off label use [Unknown]
  - Headache [Unknown]
  - Thrombocytopenia [Recovering/Resolving]
